FAERS Safety Report 4531058-7 (Version None)
Quarter: 2004Q4

REPORT INFORMATION
  Report Type: 
  Country: None (occurrence: None)
  Receive Date: 20041206
  Receipt Date: 20041006
  Transmission Date: 20050328
  Serious: Yes (Death)
  Sender: FDA-Public Use
  Company Number: US_0409105575

PATIENT
  Age: 62 Year
  Sex: Female

DRUGS (3)
  1. CYMBALATA (DULOXETINE HYDROCHLORIDE) [Suspect]
     Indication: ANXIETY
     Dosage: 60 MG/1 DAY
     Dates: start: 20040817, end: 20040913
  2. XANAX (ALPRAZOLAM DUM) [Concomitant]
  3. ZIPRASIONE [Concomitant]

REACTIONS (3)
  - COMPLETED SUICIDE [None]
  - FLAT AFFECT [None]
  - INTENTIONAL OVERDOSE [None]
